FAERS Safety Report 23836928 (Version 1)
Quarter: 2024Q2

REPORT INFORMATION
  Report Type: Spontaneous
  Country: FR (occurrence: FR)
  Receive Date: 20240509
  Receipt Date: 20240509
  Transmission Date: 20240716
  Serious: Yes (Hospitalization)
  Sender: FDA-Public Use
  Company Number: FR-ANIPHARMA-2024-FR-000077

PATIENT
  Age: 60 Year
  Sex: Male

DRUGS (16)
  1. CANDESARTAN CILEXETIL [Suspect]
     Active Substance: CANDESARTAN CILEXETIL
     Indication: Product used for unknown indication
     Dosage: 304 MG / 16 MG BID
     Route: 048
     Dates: start: 20230921, end: 20230921
  2. MIDOMAFETAMINE [Suspect]
     Active Substance: MIDOMAFETAMINE
  3. LYSERGIDE [Suspect]
     Active Substance: LYSERGIDE
  4. ASPIRIN [Concomitant]
     Active Substance: ASPIRIN
  5. PANTOPRAZOLE [Concomitant]
     Active Substance: PANTOPRAZOLE
  6. AMLODIPINE [Concomitant]
     Active Substance: AMLODIPINE BESYLATE
  7. UMECLIDINIUM BROMIDE [Concomitant]
     Active Substance: UMECLIDINIUM BROMIDE
  8. BUPRENORPHINE [Concomitant]
     Active Substance: BUPRENORPHINE
  9. METHADONE HYDROCHLORIDE [Suspect]
     Active Substance: METHADONE HYDROCHLORIDE
     Dosage: 210 MG / 60 MG DAILY
     Route: 048
     Dates: start: 20230921, end: 20230921
  10. COCAINE [Suspect]
     Active Substance: COCAINE
     Dosage: OCCASIONAL USE
  11. CANNABIS SATIVA SUBSP. INDICA TOP [Suspect]
     Active Substance: CANNABIS SATIVA SUBSP. INDICA TOP
     Dosage: FIRST JOINT AT 18, DAILY USE FOR 4/5 YEARS UNTIL 2010 (2 TO 3 JOINTS IN THE EVENING).
     Dates: start: 1981
  12. OXAZEPAM [Suspect]
     Active Substance: OXAZEPAM
     Route: 048
     Dates: start: 2021
  13. CYAMEMAZINE [Suspect]
     Active Substance: CYAMEMAZINE
     Dosage: 600 MG / 25 MG TID
     Route: 048
     Dates: start: 20230921, end: 20230921
  14. VENLAFAXINE [Suspect]
     Active Substance: VENLAFAXINE HYDROCHLORIDE
     Dosage: 675 MG / 75 MG BID
     Route: 048
     Dates: start: 20230921, end: 20230921
  15. ALCOHOL [Suspect]
     Active Substance: ALCOHOL
     Route: 048
     Dates: start: 1981
  16. HEROIN [Suspect]
     Active Substance: DIAMORPHINE
     Dosage: 1 G DAILY /  UNK
     Dates: start: 1980

REACTIONS (5)
  - Toxicity to various agents [Recovered/Resolved]
  - Drug abuse [Not Recovered/Not Resolved]
  - Acute kidney injury [Recovered/Resolved]
  - Rhabdomyolysis [Recovered/Resolved]
  - Neurological decompensation [Recovered/Resolved]

NARRATIVE: CASE EVENT DATE: 20230921
